FAERS Safety Report 25663042 (Version 1)
Quarter: 2025Q3

REPORT INFORMATION
  Report Type: Report from Study
  Country: EU (occurrence: EU)
  Receive Date: 20250811
  Receipt Date: 20250811
  Transmission Date: 20251020
  Serious: No
  Sender: KARYOPHARM THERAPEUTICS
  Company Number: EU-KARYOPHARM-2025KPT100593

PATIENT
  Age: 75 Year
  Sex: Female
  Weight: 45 kg

DRUGS (1)
  1. SELINEXOR [Suspect]
     Active Substance: SELINEXOR
     Indication: Plasma cell myeloma
     Route: 048
     Dates: start: 202501, end: 202507

REACTIONS (3)
  - Diarrhoea [Unknown]
  - Vomiting [Unknown]
  - Decreased appetite [Unknown]

NARRATIVE: CASE EVENT DATE: 20250101
